FAERS Safety Report 5021004-4 (Version None)
Quarter: 2006Q2

REPORT INFORMATION
  Report Type: 
  Country: None (occurrence: None)
  Receive Date: 20060602
  Receipt Date: 20060526
  Transmission Date: 20061013
  Serious: Yes (Other)
  Sender: FDA-Public Use
  Company Number: 200611609BCC

PATIENT
  Age: 63 Year
  Sex: Male
  Weight: 70.7611 kg

DRUGS (3)
  1. ALKA-SELTZER PLUS EFFERVESCENT COLD CHERRY BURST [Suspect]
     Indication: NASOPHARYNGITIS
     Dosage: 500 MG, Q3HR; ORAL
     Route: 048
     Dates: start: 20060411, end: 20060412
  2. ACETAMINOPHEN [Suspect]
     Indication: NASOPHARYNGITIS
     Dates: start: 20060410
  3. BLOOD PRESSURE MEDICATION [Concomitant]

REACTIONS (3)
  - ANOREXIA [None]
  - BLOOD URINE PRESENT [None]
  - FEELING ABNORMAL [None]
